FAERS Safety Report 8154756-5 (Version None)
Quarter: 2012Q1

REPORT INFORMATION
  Report Type: 
  Country: None (occurrence: None)
  Receive Date: 20120221
  Receipt Date: 20120207
  Transmission Date: 20120608
  Serious: Yes (Hospitalization, Other)
  Sender: FDA-Public Use
  Company Number: PHHY2011DE39745

PATIENT
  Sex: Male
  Weight: 61 kg

DRUGS (7)
  1. RASILEZ [Suspect]
     Dosage: 150 MG
     Route: 048
  2. HMG COA REDUCTASE INHIBITORS (STATINS) [Concomitant]
  3. RASILEZ [Suspect]
     Indication: HYPERTENSION
     Dosage: 300 MG/DAY
     Route: 048
     Dates: start: 20090108
  4. THIENOPYRIDINES [Concomitant]
  5. INSULIN [Concomitant]
     Indication: DIABETES MELLITUS
  6. BETA BLOCKING AGENTS [Concomitant]
  7. ANTIADRENERGIC AGENTS, CENTRALLY ACTING [Concomitant]

REACTIONS (5)
  - EMBOLISM [None]
  - DYSPNOEA [None]
  - ATRIAL FIBRILLATION [None]
  - CEREBROVASCULAR ACCIDENT [None]
  - FEMORAL NECK FRACTURE [None]
